FAERS Safety Report 24138663 (Version 4)
Quarter: 2024Q3

REPORT INFORMATION
  Report Type: Report from Study
  Country: IL (occurrence: IL)
  Receive Date: 20240725
  Receipt Date: 20240822
  Transmission Date: 20241017
  Serious: Yes (Death, Life-Threatening, Hospitalization, Other)
  Sender: JOHNSON AND JOHNSON
  Company Number: IL-JNJFOC-20240755798

PATIENT
  Age: 53 Year
  Sex: Female

DRUGS (6)
  1. TECVAYLI [Suspect]
     Active Substance: TECLISTAMAB-CQYV
     Indication: Plasma cell myeloma
     Route: 058
     Dates: start: 20220804
  2. TECVAYLI [Suspect]
     Active Substance: TECLISTAMAB-CQYV
     Dosage: STEP-UP DOSE 2
     Route: 058
     Dates: start: 20220807
  3. TECVAYLI [Suspect]
     Active Substance: TECLISTAMAB-CQYV
     Dosage: FIRST MAINTENANCE DOSE?105 MG (1500 MCG/KG) WEEKLY. LAST ADMINISTRATION: 15-NOV-2023. DRUG WAS WITHD
     Route: 058
     Dates: start: 20220811
  4. ACYCLOVIR [Concomitant]
     Active Substance: ACYCLOVIR
  5. ENTECAVIR [Concomitant]
     Active Substance: ENTECAVIR
  6. ESCITALOPRAM OXALATE [Concomitant]
     Active Substance: ESCITALOPRAM OXALATE

REACTIONS (1)
  - Encephalopathy [Fatal]

NARRATIVE: CASE EVENT DATE: 20231208
